FAERS Safety Report 9748775 (Version 4)
Quarter: 2014Q2

REPORT INFORMATION
  Report Type: Report from Study
  Country: US (occurrence: US)
  Receive Date: 20131212
  Receipt Date: 20140410
  Transmission Date: 20141212
  Serious: Yes (Hospitalization, Other)
  Sender: FDA-Public Use
  Company Number: US-SA-2013SA115231

PATIENT
  Age: 50 Year
  Sex: Female
  Weight: 64.2 kg

DRUGS (13)
  1. AFLIBERCEPT [Suspect]
     Indication: COLON CANCER METASTATIC
     Route: 042
     Dates: start: 20131010, end: 20131010
  2. AFLIBERCEPT [Suspect]
     Indication: COLON CANCER METASTATIC
     Route: 042
     Dates: start: 20131024, end: 20131024
  3. SAR307746 [Suspect]
     Indication: COLON CANCER METASTATIC
     Route: 042
     Dates: start: 20131010, end: 20131010
  4. SAR307746 [Suspect]
     Indication: COLON CANCER METASTATIC
     Route: 042
     Dates: start: 20131024, end: 20131024
  5. BACLOFEN [Concomitant]
     Indication: MUSCLE SPASMS
     Route: 048
     Dates: start: 2005
  6. GENERAL NUTRIENTS [Concomitant]
     Indication: PROPHYLAXIS
     Route: 048
     Dates: start: 201101
  7. MULTIVITAMINS [Concomitant]
     Indication: SUPPLEMENTATION THERAPY
     Route: 048
  8. DULCOLAX [Concomitant]
     Indication: CONSTIPATION PROPHYLAXIS
     Route: 048
     Dates: start: 2009
  9. IBUPROFEN [Concomitant]
     Indication: PAIN
     Route: 048
     Dates: start: 2000
  10. LEVAQUIN [Concomitant]
     Indication: URINARY TRACT INFECTION
     Route: 048
     Dates: start: 20131010, end: 20131024
  11. NEURONTIN [Concomitant]
     Indication: NEUROPATHY PERIPHERAL
     Route: 048
     Dates: start: 2012
  12. POLYETHYLENE GLYCOL [Concomitant]
     Indication: CONSTIPATION
     Dosage: 1-2 SCOOPS
     Route: 048
     Dates: start: 20131010, end: 20131109
  13. TIZANIDINE [Concomitant]
     Indication: MUSCLE SPASMS
     Route: 048
     Dates: start: 2011

REACTIONS (4)
  - Nuclear magnetic resonance imaging brain abnormal [Not Recovered/Not Resolved]
  - Convulsion [Recovered/Resolved]
  - Urinary tract infection [Recovered/Resolved]
  - Intestinal obstruction [Recovered/Resolved with Sequelae]
